FAERS Safety Report 15322446 (Version 1)
Quarter: 2018Q4

REPORT INFORMATION
  Report Type: Spontaneous
  Country: ES (occurrence: ES)
  Receive Date: 20180827
  Receipt Date: 20180827
  Transmission Date: 20190204
  Serious: Yes (Other)
  Sender: FDA-Public Use
  Company Number: ES-GILEAD-2018-0358691

PATIENT
  Age: 67 Year
  Sex: Male

DRUGS (2)
  1. TELBIVUDINA [Suspect]
     Active Substance: TELBIVUDINE
     Indication: HEPATITIS B
     Dosage: 600 MG, UNK
     Route: 048
     Dates: start: 2008, end: 20170331
  2. HEPSERA [Suspect]
     Active Substance: ADEFOVIR DIPIVOXIL
     Indication: HEPATITIS B
     Dosage: 10 MG, UNK
     Route: 048
     Dates: start: 20070110, end: 20170331

REACTIONS (1)
  - Myopathy [Recovered/Resolved with Sequelae]

NARRATIVE: CASE EVENT DATE: 20161201
